FAERS Safety Report 15259716 (Version 2)
Quarter: 2018Q3

REPORT INFORMATION
  Report Type: Spontaneous
  Country: BR (occurrence: BR)
  Receive Date: 20180809
  Receipt Date: 20180814
  Transmission Date: 20181010
  Serious: Yes (Other)
  Sender: FDA-Public Use
  Company Number: BR-TEVA-2018-BR-941223

PATIENT
  Age: 90 Year
  Sex: Female

DRUGS (6)
  1. LOSARTAN. [Concomitant]
     Active Substance: LOSARTAN
     Route: 065
  2. PROLOPA DR [Concomitant]
     Route: 065
  3. QUETIAPINE. [Concomitant]
     Active Substance: QUETIAPINE
     Route: 065
  4. MEMANTINE. [Concomitant]
     Active Substance: MEMANTINE
     Route: 065
  5. AZILECT [Suspect]
     Active Substance: RASAGILINE MESYLATE
     Dosage: STARTED 2?3 MONTHS AGO
     Route: 065
  6. DONEPEZIL. [Concomitant]
     Active Substance: DONEPEZIL
     Route: 065

REACTIONS (2)
  - Skin lesion [Unknown]
  - Dermatitis bullous [Unknown]
